FAERS Safety Report 6725975-7 (Version None)
Quarter: 2010Q2

REPORT INFORMATION
  Report Type: 
  Country: None (occurrence: None)
  Receive Date: 20100514
  Receipt Date: 20100428
  Transmission Date: 20101027
  Serious: Yes (Hospitalization, Other)
  Sender: FDA-Public Use
  Company Number: PHEH2010US03454

PATIENT
  Sex: Female

DRUGS (3)
  1. AREDIA [Suspect]
     Indication: METASTASES TO BONE
     Dosage: 60 MG, UNK
     Route: 042
     Dates: start: 20060828
  2. ZOMETA [Suspect]
     Indication: MULTIPLE MYELOMA
     Dosage: UNK
     Dates: start: 20040812
  3. LISINOPRIL [Concomitant]

REACTIONS (26)
  - ARTHRALGIA [None]
  - BACK PAIN [None]
  - BLOOD ALKALINE PHOSPHATASE INCREASED [None]
  - BRONCHITIS [None]
  - CHEST PAIN [None]
  - COMPRESSION FRACTURE [None]
  - DIVERTICULITIS [None]
  - EMPHYSEMA [None]
  - LIGHT CHAIN ANALYSIS INCREASED [None]
  - MULTIPLE MYELOMA [None]
  - MUSCULOSKELETAL PAIN [None]
  - NECK PAIN [None]
  - NEPHROLITHIASIS [None]
  - NEUROPATHY PERIPHERAL [None]
  - ORAL DISORDER [None]
  - OSTEONECROSIS OF JAW [None]
  - OSTEOPOROSIS [None]
  - PRODUCTIVE COUGH [None]
  - PROTEINURIA [None]
  - PULMONARY FIBROSIS [None]
  - RENAL DISORDER [None]
  - RENAL FAILURE [None]
  - RESTLESS LEGS SYNDROME [None]
  - SECRETION DISCHARGE [None]
  - URINARY TRACT INFECTION [None]
  - VERTEBROPLASTY [None]
